FAERS Safety Report 7462588-6 (Version None)
Quarter: 2011Q2

REPORT INFORMATION
  Report Type: 
  Country: None (occurrence: None)
  Receive Date: 20110506
  Receipt Date: 20110503
  Transmission Date: 20111010
  Serious: Yes (Disabling, Other)
  Sender: FDA-Public Use
  Company Number: RO-PFIZER INC-2011062658

PATIENT
  Age: 65 Year
  Sex: Male

DRUGS (3)
  1. PREDUCTAL MR [Suspect]
     Indication: DYSPNOEA
     Dosage: 70 MG, 2X/DAY
  2. PROPRANOLOL [Concomitant]
     Indication: TREMOR
     Dosage: 40 MG, 3X/DAY
  3. ALPRAZOLAM [Suspect]
     Indication: TREMOR

REACTIONS (3)
  - PARKINSON'S DISEASE [None]
  - EXTRASYSTOLES [None]
  - TREMOR [None]
